FAERS Safety Report 7384658 (Version 6)
Quarter: 2013Q4

REPORT INFORMATION
  Report Type: Spontaneous
  Country: US (occurrence: US)
  Receive Date: 20100512
  Receipt Date: 20131016
  Transmission Date: 20140711
  Serious: Yes (Other)
  Sender: FDA-Public Use
  Company Number: US-BAYER-201021252NA

PATIENT
  Age: 27 Year
  Sex: Female
  Weight: 80.91 kg

DRUGS (8)
  1. YASMIN [Suspect]
     Indication: ORAL CONTRACEPTION
     Route: 048
     Dates: start: 2000, end: 2009
  2. YAZ [Suspect]
     Route: 048
     Dates: start: 2002
  3. OCELLA [Suspect]
     Route: 048
     Dates: start: 2000, end: 2009
  4. XANAX [Concomitant]
  5. CELEXA [Concomitant]
  6. DARVOCET-N [Concomitant]
  7. HYOSCYAMINE SULFATE [Concomitant]
  8. TRIMETHOBENZAMIDE [Concomitant]

REACTIONS (11)
  - Gallbladder disorder [Unknown]
  - Cholecystitis chronic [None]
  - Abdominal pain lower [Unknown]
  - Vomiting [Unknown]
  - Diarrhoea [Unknown]
  - Weight decreased [Unknown]
  - Abdominal discomfort [Unknown]
  - Abdominal pain [Unknown]
  - Nausea [Unknown]
  - Abdominal distension [Unknown]
  - Diarrhoea [Unknown]
